FAERS Safety Report 6750506-5 (Version None)
Quarter: 2010Q2

REPORT INFORMATION
  Report Type: 
  Country: None (occurrence: None)
  Receive Date: 20100527
  Receipt Date: 20100513
  Transmission Date: 20101027
  Serious: Yes (Death)
  Sender: FDA-Public Use
  Company Number: IND1-TW-2010-0049

PATIENT

DRUGS (1)
  1. INDOCIN [Suspect]
     Indication: PATENT DUCTUS ARTERIOSUS
     Dosage: 0.2 MG/KG/1X; UNKNOWN

REACTIONS (8)
  - ALCOHOL USE [None]
  - BLOOD CREATININE INCREASED [None]
  - BLOOD SODIUM DECREASED [None]
  - GASTRIC HAEMORRHAGE [None]
  - INCORRECT ROUTE OF DRUG ADMINISTRATION [None]
  - OLIGURIA [None]
  - SEPSIS [None]
  - WRONG TECHNIQUE IN DRUG USAGE PROCESS [None]
